FAERS Safety Report 10416003 (Version 2)
Quarter: 2014Q3

REPORT INFORMATION
  Report Type: Spontaneous
  Country: US (occurrence: US)
  Receive Date: 20140828
  Receipt Date: 20140828
  Transmission Date: 20150326
  Serious: Yes (Death, Hospitalization, Other)
  Sender: FDA-Public Use
  Company Number: US-009507513-2010SP012801

PATIENT
  Sex: Female
  Weight: 58.51 kg

DRUGS (6)
  1. ARMOUR THYROID [Concomitant]
     Active Substance: THYROID, PORCINE\THYROID, UNSPECIFIED
     Indication: THYROID DISORDER
     Dosage: 1 DF, QD
     Dates: start: 20061031, end: 20061228
  2. NUVARING [Suspect]
     Active Substance: ETHINYL ESTRADIOL\ETONOGESTREL
     Indication: MICTURITION URGENCY
  3. LUNESTA [Concomitant]
     Active Substance: ESZOPICLONE
     Indication: INSOMNIA
     Dosage: UNK UNK, PRN
     Dates: start: 20061205
  4. SYNTHROID [Concomitant]
     Active Substance: LEVOTHYROXINE SODIUM
     Indication: THYROID DISORDER
     Dosage: 1 DF, QD
     Dates: start: 20061229, end: 20070102
  5. NUVARING [Suspect]
     Active Substance: ETHINYL ESTRADIOL\ETONOGESTREL
     Indication: POLLAKIURIA
     Route: 067
     Dates: start: 20061024, end: 20070102
  6. COMBIPATCH [Concomitant]
     Active Substance: ESTRADIOL\NORETHINDRONE ACETATE
     Indication: BLADDER DISORDER
     Dosage: TAKEN UNTIL 31OCT2006 OR LATER
     Dates: start: 2003

REACTIONS (9)
  - Pulmonary embolism [Fatal]
  - Laceration [Unknown]
  - Hypoxia [Fatal]
  - Blood glucose increased [Unknown]
  - Blood potassium decreased [Unknown]
  - Troponin I increased [Unknown]
  - Blood calcium decreased [Unknown]
  - Cardio-respiratory arrest [Fatal]
  - Off label use [Unknown]

NARRATIVE: CASE EVENT DATE: 20070102
